FAERS Safety Report 20136431 (Version 1)
Quarter: 2021Q4

REPORT INFORMATION
  Report Type: Spontaneous
  Country: US (occurrence: US)
  Receive Date: 20211201
  Receipt Date: 20211201
  Transmission Date: 20220304
  Serious: Yes (Other)
  Sender: FDA-Public Use
  Company Number: US-GLAXOSMITHKLINE-USCH2021GSK084762

PATIENT
  Sex: Female

DRUGS (27)
  1. PREVACID 24 HR [Suspect]
     Active Substance: LANSOPRAZOLE
     Indication: Gastrooesophageal reflux disease
     Dosage: UNKNOWN
     Route: 048
     Dates: start: 2009
  2. PREVACID [Suspect]
     Active Substance: LANSOPRAZOLE
     Indication: Gastrooesophageal reflux disease
     Dosage: 30 MG, QD
     Route: 048
     Dates: start: 2013, end: 2018
  3. LANSOPRAZOLE [Suspect]
     Active Substance: LANSOPRAZOLE
     Indication: Gastrooesophageal reflux disease
     Dosage: 20 MG, QD
     Route: 048
     Dates: end: 2017
  4. NEXIUM [Suspect]
     Active Substance: ESOMEPRAZOLE MAGNESIUM
     Indication: Gastrooesophageal reflux disease
     Dosage: 20 MG, QD
     Route: 048
     Dates: start: 2011, end: 2016
  5. NEXIUM 24HR [Suspect]
     Active Substance: ESOMEPRAZOLE MAGNESIUM
     Indication: Gastrooesophageal reflux disease
     Dosage: UNKNOWN
     Route: 048
     Dates: start: 2014, end: 2019
  6. PRILOSEC [Suspect]
     Active Substance: OMEPRAZOLE MAGNESIUM
     Indication: Gastrooesophageal reflux disease
     Dosage: 20 MG, QD
     Route: 048
     Dates: start: 2010, end: 2018
  7. OMEPRAZOLE [Suspect]
     Active Substance: OMEPRAZOLE
     Indication: Gastrooesophageal reflux disease
     Dosage: 20 MG, QD
     Route: 048
     Dates: start: 2008, end: 2019
  8. NAPROXEN [Concomitant]
     Active Substance: NAPROXEN
     Indication: Pain
     Dosage: UNK
     Route: 065
     Dates: start: 2006, end: 2007
  9. CEPHALEXIN [Concomitant]
     Active Substance: CEPHALEXIN
     Indication: Antibiotic therapy
     Dosage: UNK
     Route: 065
     Dates: start: 2006, end: 2019
  10. TETRACYCLINE HYDROCHLORIDE [Concomitant]
     Active Substance: TETRACYCLINE HYDROCHLORIDE
     Indication: Antibiotic therapy
     Dosage: UNK
     Route: 065
     Dates: start: 2006, end: 2007
  11. AMOXICILLIN TRIHYDRATE [Concomitant]
     Active Substance: AMOXICILLIN
     Indication: Antibiotic therapy
     Dosage: UNKNOWN
     Route: 065
     Dates: start: 2010
  12. AMOXICILLIN TRIHYDRATE [Concomitant]
     Active Substance: AMOXICILLIN
     Indication: Pharyngitis
  13. OLMESARTAN [Concomitant]
     Active Substance: OLMESARTAN
     Indication: Hypertension
     Dosage: UNK
     Route: 065
     Dates: start: 2014, end: 2020
  14. VALSARTAN [Concomitant]
     Active Substance: VALSARTAN
     Indication: Hypertension
     Dosage: UNKNOWN
     Route: 065
     Dates: start: 2008, end: 2020
  15. PRAVASTATIN SODIUM [Concomitant]
     Active Substance: PRAVASTATIN SODIUM
     Indication: Blood cholesterol increased
     Dosage: UNK
     Route: 065
     Dates: start: 2009
  16. CYTOXAN [Concomitant]
     Active Substance: CYCLOPHOSPHAMIDE
     Indication: Proteinuria
     Dosage: UNKNOWN
     Route: 065
     Dates: start: 2012
  17. CIPROFLOXACIN [Concomitant]
     Active Substance: CIPROFLOXACIN
     Indication: Antibiotic therapy
     Dosage: UNK
     Route: 065
     Dates: start: 201908, end: 202008
  18. AZITHROMYCIN [Concomitant]
     Active Substance: AZITHROMYCIN
     Indication: Antibiotic therapy
     Dosage: UNK
     Route: 065
     Dates: start: 20190116
  19. ALLOPURINOL [Concomitant]
     Active Substance: ALLOPURINOL
     Indication: Gout
     Dosage: UNK
     Route: 065
     Dates: start: 2019
  20. FUROSEMIDE [Concomitant]
     Active Substance: FUROSEMIDE
     Indication: Renal injury
     Dosage: UNK
     Route: 065
     Dates: start: 201910
  21. GENTAMICIN SULFATE [Concomitant]
     Active Substance: GENTAMICIN SULFATE
     Indication: Antibiotic therapy
     Dosage: UNK
     Route: 065
     Dates: start: 202008
  22. ACETAMINOPHEN [Concomitant]
     Active Substance: ACETAMINOPHEN
     Indication: Pain
     Dosage: UNK
     Route: 065
     Dates: start: 2008
  23. BENADRYL [Concomitant]
     Active Substance: DIPHENHYDRAMINE HYDROCHLORIDE
     Indication: Hypersensitivity
     Dosage: UNK
     Route: 065
     Dates: start: 2008
  24. FAMOTIDINE [Concomitant]
     Active Substance: FAMOTIDINE
     Indication: Product used for unknown indication
     Dosage: UNK
     Route: 065
     Dates: start: 2018
  25. PEPCID AC [Concomitant]
     Active Substance: FAMOTIDINE
     Indication: Product used for unknown indication
     Dosage: UNK
     Route: 065
     Dates: start: 2018, end: 2020
  26. TAGAMET HB [Concomitant]
     Active Substance: CIMETIDINE
     Indication: Product used for unknown indication
     Dosage: UNK
     Route: 065
     Dates: start: 2010
  27. ZANTAC [Concomitant]
     Active Substance: RANITIDINE HYDROCHLORIDE
     Indication: Product used for unknown indication
     Dosage: UNK
     Route: 065
     Dates: start: 2010

REACTIONS (2)
  - Chronic kidney disease [Not Recovered/Not Resolved]
  - End stage renal disease [Not Recovered/Not Resolved]

NARRATIVE: CASE EVENT DATE: 20110101
